FAERS Safety Report 4955735-9 (Version None)
Quarter: 2006Q1

REPORT INFORMATION
  Report Type: 
  Country: None (occurrence: None)
  Receive Date: 20060328
  Receipt Date: 20060316
  Transmission Date: 20060701
  Serious: Yes (Hospitalization)
  Sender: FDA-Public Use
  Company Number: FR-ROCHE-440986

PATIENT
  Age: 52 Year
  Sex: Male

DRUGS (6)
  1. PEGASYS [Suspect]
     Indication: HEPATITIS C
     Route: 058
     Dates: start: 20051201
  2. COPEGUS [Suspect]
     Indication: HEPATITIS C
     Route: 048
     Dates: start: 20051201
  3. RUBOZINC [Concomitant]
     Indication: ACNE
     Route: 048
     Dates: start: 20050901
  4. UNSPECIFIED DRUG [Concomitant]
     Dosage: DRUG REPROTED AS 'LOCAID POMADE'
     Dates: start: 20050515
  5. ERYFLUID [Concomitant]
     Dates: start: 20050915
  6. DOXYCYCLINE [Concomitant]
     Dates: start: 20050515

REACTIONS (2)
  - ACNE CYSTIC [None]
  - HEPATITIS C [None]
